FAERS Safety Report 24050449 (Version 1)
Quarter: 2024Q3

REPORT INFORMATION
  Report Type: Spontaneous
  Country: BR (occurrence: BR)
  Receive Date: 20240704
  Receipt Date: 20240704
  Transmission Date: 20241016
  Serious: Yes (Other)
  Sender: ACCORD
  Company Number: BR-Accord-431112

PATIENT
  Age: 54 Year
  Sex: Female
  Weight: 73 kg

DRUGS (9)
  1. OXALIPLATIN [Suspect]
     Active Substance: OXALIPLATIN
     Indication: Rectal cancer
     Route: 042
     Dates: start: 20240517
  2. ONDANSETRON [Concomitant]
     Active Substance: ONDANSETRON
     Indication: Chemotherapy side effect prophylaxis
     Route: 042
     Dates: start: 20240517
  3. DEXAMETHASONE [Concomitant]
     Active Substance: DEXAMETHASONE
     Indication: Chemotherapy side effect prophylaxis
     Route: 042
     Dates: start: 20240517
  4. SODIUM CHLORIDE [Concomitant]
     Active Substance: SODIUM CHLORIDE
     Indication: Chemotherapy side effect prophylaxis
     Dosage: 250 ML
     Route: 042
     Dates: start: 20240517
  5. LOSARTAN [Concomitant]
     Active Substance: LOSARTAN
     Dosage: EVERY 12 HOURS
  6. RIVAROXABAN [Concomitant]
     Active Substance: RIVAROXABAN
     Dosage: DAILY
  7. HYDROCHLOROTHIAZIDE [Concomitant]
     Active Substance: HYDROCHLOROTHIAZIDE
  8. SIMVASTATIN [Concomitant]
     Active Substance: SIMVASTATIN
     Dosage: IN THE NIGHT
  9. NPH INSULIN [Concomitant]
     Active Substance: INSULIN BEEF

REACTIONS (5)
  - Cough [Recovered/Resolved]
  - Tremor [Recovered/Resolved]
  - Dyspnoea [Recovered/Resolved]
  - Tachycardia [Recovered/Resolved]
  - Hypertension [Recovered/Resolved]

NARRATIVE: CASE EVENT DATE: 20240517
